FAERS Safety Report 9649190 (Version 2)
Quarter: 2013Q4

REPORT INFORMATION
  Report Type: Spontaneous
  Country: IT (occurrence: IT)
  Receive Date: 20131028
  Receipt Date: 20131220
  Transmission Date: 20140711
  Serious: Yes (Hospitalization)
  Sender: FDA-Public Use
  Company Number: IT-TEVA-439093ISR

PATIENT
  Age: 61 Year
  Sex: Female

DRUGS (3)
  1. SERTRALINA [Suspect]
     Indication: ANXIETY
     Dosage: 100 MILLIGRAM DAILY;
     Route: 048
     Dates: start: 20120101, end: 20131003
  2. TAVOR 2,5 MG [Concomitant]
     Indication: ANXIETY
     Dosage: 2.5 MILLIGRAM DAILY;
     Route: 048
     Dates: start: 20120101, end: 20131003
  3. TALOFEN [Concomitant]
     Indication: ANXIETY
     Dosage: 50 GTT DAILY;
     Route: 048
     Dates: start: 20120101, end: 20131003

REACTIONS (4)
  - Conduct disorder [Recovering/Resolving]
  - Hyponatraemia [Recovering/Resolving]
  - Hypochloraemia [Recovering/Resolving]
  - Toxic encephalopathy [Recovering/Resolving]
